FAERS Safety Report 4693035-5 (Version None)
Quarter: 2005Q2

REPORT INFORMATION
  Report Type: 
  Country: None (occurrence: None)
  Receive Date: 20050616
  Receipt Date: 20050604
  Transmission Date: 20051028
  Serious: Yes (Other)
  Sender: FDA-Public Use
  Company Number: 2005082996

PATIENT
  Sex: Male
  Weight: 81.6475 kg

DRUGS (2)
  1. DRAMAMINE [Suspect]
     Indication: EUPHORIC MOOD
     Dosage: 24 TABLETS ONCE, THEN 18 TABLETS
     Dates: start: 20030101, end: 20050601
  2. ATOMOXETINE HYDROCHLORIDE (ATOMOXETINE HYDROCHLORIDE) [Concomitant]

REACTIONS (6)
  - ABDOMINAL DISTENSION [None]
  - FLATULENCE [None]
  - HALLUCINATION [None]
  - HYPERPHAGIA [None]
  - INTENTIONAL MISUSE [None]
  - SOMNOLENCE [None]
